FAERS Safety Report 7291906-7 (Version None)
Quarter: 2011Q1

REPORT INFORMATION
  Report Type: 
  Country: None (occurrence: None)
  Receive Date: 20110214
  Receipt Date: 20110207
  Transmission Date: 20110831
  Serious: Yes (Hospitalization, Congenital Anomaly)
  Sender: FDA-Public Use
  Company Number: NL-MEDIMMUNE-MEDI-0012469

PATIENT
  Sex: Male
  Weight: 7.05 kg

DRUGS (2)
  1. SYNAGIS [Suspect]
     Route: 030
     Dates: start: 20100921, end: 20110110
  2. SYNAGIS [Suspect]
     Route: 030
     Dates: start: 20110207, end: 20110207

REACTIONS (7)
  - PYREXIA [None]
  - INFANTILE SPITTING UP [None]
  - OXYGEN SATURATION DECREASED [None]
  - NASOPHARYNGITIS [None]
  - SENSE OF OPPRESSION [None]
  - COUGH [None]
  - RHINOVIRUS INFECTION [None]
